FAERS Safety Report 25392869 (Version 6)
Quarter: 2025Q4

REPORT INFORMATION
  Report Type: Report from Study
  Country: US (occurrence: US)
  Receive Date: 20250604
  Receipt Date: 20251112
  Transmission Date: 20260117
  Serious: Yes (Other)
  Sender: MALLINCKRODT
  Company Number: US-MALLINCKRODT-MNK202503342

PATIENT
  Sex: Female

DRUGS (3)
  1. CORTICOTROPIN [Suspect]
     Active Substance: CORTICOTROPIN
     Indication: Polymyositis
  2. CORTICOTROPIN [Suspect]
     Active Substance: CORTICOTROPIN
     Indication: Polymyositis
     Dosage: UNKNOWN (RESTARTED)
     Dates: start: 20250915
  3. REMICADE [Concomitant]
     Active Substance: INFLIXIMAB
     Dosage: UNKNOWN

REACTIONS (6)
  - Intervertebral disc protrusion [Not Recovered/Not Resolved]
  - Pain [Unknown]
  - Depressed mood [Unknown]
  - Injection site mass [Recovered/Resolved]
  - Injection site swelling [Recovered/Resolved]
  - Injection site pain [Recovered/Resolved]
